FAERS Safety Report 19476924 (Version 1)
Quarter: 2021Q2

REPORT INFORMATION
  Report Type: Spontaneous
  Country: US (occurrence: US)
  Receive Date: 20210630
  Receipt Date: 20210630
  Transmission Date: 20210717
  Serious: No
  Sender: FDA-Public Use
  Company Number: US-PFIZER INC-2015334689

PATIENT
  Age: 66 Year
  Sex: Female

DRUGS (25)
  1. CALCIUM CARBONATE AND VITAMIN D [Concomitant]
     Active Substance: CALCIUM CARBONATE\VITAMIN D
     Dosage: 1 DF, DAILY  [CALCIUM CARBONATE?600 MG] [COLECALCIFEROL?200 U]
     Route: 048
  2. DICLOFENAC SODIUM. [Concomitant]
     Active Substance: DICLOFENAC SODIUM
     Dosage: 225 MG, DAILY (2 TABLETS BY MOUTH IN THE MORNING AND 1 TABLET IN P.M. (TAKE MEDICATION WITH FOOD)
     Route: 048
  3. LYRICA [Suspect]
     Active Substance: PREGABALIN
     Indication: POLYNEUROPATHY
     Dosage: 200 MG, DAILY (1 CAPSULE MORNING AND NOON, 2 CAPSULES AT BEDTIME)
     Route: 048
     Dates: start: 20150916
  4. VITAMIN D [Concomitant]
     Active Substance: VITAMIN D NOS
     Dosage: 2000 IU, DAILY
     Route: 048
  5. LISINOPRIL. [Concomitant]
     Active Substance: LISINOPRIL
     Dosage: 40 MG, 1X/DAY
     Route: 048
  6. METHYLPHENIDATE. [Concomitant]
     Active Substance: METHYLPHENIDATE
     Dosage: 30 MG, DAILY [1 TAB(S) PO AM, 1 TAB NOON, 1 TAB BEFORE 3 PM]
     Route: 048
  7. CYMBALTA [Concomitant]
     Active Substance: DULOXETINE HYDROCHLORIDE
     Dosage: 180 MG, DAILY
     Route: 048
  8. METOPROLOL TARTRATE. [Concomitant]
     Active Substance: METOPROLOL TARTRATE
     Dosage: 25 MG, 2X/DAY
     Route: 048
  9. LYRICA [Suspect]
     Active Substance: PREGABALIN
     Dosage: 200 MG, DAILY (1 IN AM AND 3 CAPSULE AT BED TIME)
     Route: 048
  10. BIOTIN [Concomitant]
     Active Substance: BIOTIN
     Dosage: 1 DF, DAILY
     Route: 048
  11. FUROSEMIDE. [Concomitant]
     Active Substance: FUROSEMIDE
     Dosage: 40 MG, 1X/DAY
     Route: 048
  12. ZINC. [Concomitant]
     Active Substance: ZINC
     Dosage: 1 DF, DAILY
     Route: 048
  13. FOLIC ACID. [Concomitant]
     Active Substance: FOLIC ACID
     Dosage: 1 DF, DAILY
     Route: 048
  14. LORAZEPAM. [Concomitant]
     Active Substance: LORAZEPAM
     Indication: INSOMNIA
  15. CLOBETASOL [Concomitant]
     Active Substance: CLOBETASOL
     Dosage: UNK UNK, 2X/DAY
     Route: 061
  16. VOLTAREN [Concomitant]
     Active Substance: DICLOFENAC SODIUM
     Indication: PAIN IN EXTREMITY
     Dosage: UNK, AS NEEDED [1 APP, QID, NOT TO EXCEED 16 GRAMS/DAY/SINGLE ]
     Route: 061
  17. ESTRADIOL. [Concomitant]
     Active Substance: ESTRADIOL
     Dosage: UNK [SMALL AMT APPLIED TO EXTERNAL VAG]
     Route: 067
  18. LORAZEPAM. [Concomitant]
     Active Substance: LORAZEPAM
     Indication: ANXIETY
     Dosage: UNK, AS NEEDED (1/2 TO 1 TAB ORALLY TWICE DAILY AND 1?2 TABS AT BEDTIME/AS NEEDED)
     Route: 048
  19. FOLTX [Concomitant]
     Active Substance: CYANOCOBALAMIN CO-57\FOLIC ACID\PYRIDOXINE HYDROCHLORIDE
     Dosage: 1 DF, DAILY
     Route: 048
  20. OMEPRAZOLE. [Concomitant]
     Active Substance: OMEPRAZOLE
     Dosage: 40 MG, 2X/DAY
     Route: 048
  21. VALTREX [Concomitant]
     Active Substance: VALACYCLOVIR HYDROCHLORIDE
     Dosage: 2 G, DAILY [TAKE 2 TABS AT ONSET AND AGAIN IN 24 HOURS]
     Route: 048
  22. LYRICA [Suspect]
     Active Substance: PREGABALIN
     Indication: RADIATION NEUROPATHY
     Dosage: 150 MG, 1X/DAY (3 CAPSULE AT BEDTIME 90 DAYS)
     Route: 048
  23. NORCO [Concomitant]
     Active Substance: ACETAMINOPHEN\HYDROCODONE BITARTRATE
     Indication: PAIN
     Dosage: UNK, AS NEEDED [Q3 HR] [HYDROCODONE BITARTRATE?5 MG] [PARACETAMOL?325 MG]
     Route: 048
  24. SIMVASTATIN. [Concomitant]
     Active Substance: SIMVASTATIN
     Dosage: 20 MG, 1X/DAY [QHS]
     Route: 048
  25. ESTRADIOL. [Concomitant]
     Active Substance: ESTRADIOL
     Dosage: 0.5 MG, DAILY
     Route: 048

REACTIONS (2)
  - Off label use [Unknown]
  - Breakthrough pain [Unknown]

NARRATIVE: CASE EVENT DATE: 20150916
